FAERS Safety Report 14631400 (Version 3)
Quarter: 2018Q4

REPORT INFORMATION
  Report Type: Report from Study
  Country: DE (occurrence: DE)
  Receive Date: 20180313
  Receipt Date: 20181122
  Transmission Date: 20190204
  Serious: Yes (Hospitalization, Other)
  Sender: FDA-Public Use
  Company Number: PHHY2017DE170559

PATIENT
  Age: 67 Year
  Sex: Male
  Weight: 83 kg

DRUGS (10)
  1. TRAMETINIB [Suspect]
     Active Substance: TRAMETINIB
     Indication: METASTATIC MALIGNANT MELANOMA
     Dosage: 2 MG, QD
     Route: 048
     Dates: start: 20170317, end: 20180912
  2. VALSACOR [Concomitant]
     Active Substance: VALSARTAN
     Indication: HYPERTENSION
     Dosage: 320 MG, QD
     Route: 048
  3. PANTOPRAZOLE [Concomitant]
     Active Substance: PANTOPRAZOLE
     Indication: PRODUCT USED FOR UNKNOWN INDICATION
     Dosage: 40 MG, QD
     Route: 048
     Dates: start: 20180608, end: 20180626
  4. ENOXAPARIN [Concomitant]
     Active Substance: ENOXAPARIN
     Indication: PRODUCT USED FOR UNKNOWN INDICATION
     Dosage: 40 MG, QD
     Route: 058
     Dates: start: 20180608, end: 20180626
  5. VALSACOR [Concomitant]
     Active Substance: VALSARTAN
     Indication: MITRAL VALVE INCOMPETENCE
  6. DEXAMETHASONE. [Concomitant]
     Active Substance: DEXAMETHASONE
     Indication: PRODUCT USED FOR UNKNOWN INDICATION
     Dosage: 0.25 MG, QD
     Route: 061
     Dates: start: 20180705, end: 20180708
  7. PARACETAMOL [Concomitant]
     Active Substance: ACETAMINOPHEN
     Indication: MALIGNANT MELANOMA
     Dosage: 500 MG, PRN
     Route: 048
     Dates: start: 20170413
  8. BUDES [Concomitant]
     Active Substance: BUDESONIDE
     Indication: PRODUCT USED FOR UNKNOWN INDICATION
     Dosage: 256 UG, BID
     Route: 045
     Dates: start: 20171127
  9. TAFINLAR [Suspect]
     Active Substance: DABRAFENIB MESYLATE
     Indication: METASTATIC MALIGNANT MELANOMA
     Dosage: 150 UNK, UNK
     Route: 048
     Dates: start: 20170317
  10. VALSACOR [Concomitant]
     Active Substance: VALSARTAN
     Indication: TRICUSPID VALVE INCOMPETENCE

REACTIONS (5)
  - Metastatic malignant melanoma [Recovered/Resolved]
  - CSF pressure [Recovered/Resolved]
  - Thrombocytopenia [Not Recovered/Not Resolved]
  - Metastases to gallbladder [Unknown]
  - Infection [Recovered/Resolved]

NARRATIVE: CASE EVENT DATE: 20170413
